FAERS Safety Report 24954586 (Version 3)
Quarter: 2025Q3

REPORT INFORMATION
  Report Type: Report from Study
  Country: CA (occurrence: CA)
  Receive Date: 20250211
  Receipt Date: 20250809
  Transmission Date: 20251021
  Serious: Yes (Hospitalization)
  Sender: ALEXION PHARMACEUTICALS
  Company Number: CA-AstraZeneca-CH-00799856A

PATIENT
  Sex: Male

DRUGS (5)
  1. ULTOMIRIS [Suspect]
     Active Substance: RAVULIZUMAB-CWVZ
     Indication: Paroxysmal nocturnal haemoglobinuria
  2. ULTOMIRIS [Suspect]
     Active Substance: RAVULIZUMAB-CWVZ
  3. ULTOMIRIS [Suspect]
     Active Substance: RAVULIZUMAB-CWVZ
     Dosage: 3300 MILLIGRAM, Q8W
     Dates: start: 20221027
  4. SOLIRIS [Suspect]
     Active Substance: ECULIZUMAB
     Indication: Paroxysmal nocturnal haemoglobinuria
     Route: 065
     Dates: start: 20110818, end: 20220804
  5. SOLIRIS [Suspect]
     Active Substance: ECULIZUMAB
     Route: 065
     Dates: start: 20250203, end: 20250203

REACTIONS (6)
  - Headache [Unknown]
  - Oropharyngeal pain [Unknown]
  - Haemoglobin decreased [Recovering/Resolving]
  - Bacterial infection [Unknown]
  - Illness [Unknown]
  - Pyrexia [Recovering/Resolving]
